FAERS Safety Report 25613351 (Version 1)
Quarter: 2025Q3

REPORT INFORMATION
  Report Type: Spontaneous
  Country: US (occurrence: US)
  Receive Date: 20250728
  Receipt Date: 20250728
  Transmission Date: 20251020
  Serious: Yes (Other)
  Sender: FRESENIUS KABI
  Company Number: US-FreseniusKabi-FK202510374

PATIENT
  Age: 67 Year
  Sex: Female

DRUGS (1)
  1. HYDRALAZINE [Suspect]
     Active Substance: HYDRALAZINE HYDROCHLORIDE
     Indication: Hypertension

REACTIONS (3)
  - Pulmonary alveolar haemorrhage [Recovering/Resolving]
  - Respiratory failure [Recovering/Resolving]
  - Vasculitis [Recovering/Resolving]
